FAERS Safety Report 6827457-0 (Version None)
Quarter: 2010Q3

REPORT INFORMATION
  Report Type: 
  Country: None (occurrence: None)
  Receive Date: 20100709
  Receipt Date: 20100625
  Transmission Date: 20110219
  Serious: Yes (Hospitalization)
  Sender: FDA-Public Use
  Company Number: FR-GENENTECH-301502

PATIENT
  Sex: Female
  Weight: 90 kg

DRUGS (8)
  1. MABTHERA [Suspect]
     Indication: CHRONIC LYMPHOCYTIC LEUKAEMIA
     Dosage: 375 MG/M2, UNK
     Route: 042
     Dates: start: 20091002, end: 20100304
  2. CYCLOPHOSPHAMIDE [Suspect]
     Indication: CHRONIC LYMPHOCYTIC LEUKAEMIA
     Dosage: 300 MG/M2, UNK
     Route: 042
     Dates: start: 20091002, end: 20100304
  3. DOXORUBICIN HCL [Suspect]
     Indication: CHRONIC LYMPHOCYTIC LEUKAEMIA
     Dosage: 50 MG/M2, UNK
     Route: 042
     Dates: start: 20091106, end: 20100304
  4. VINCRISTINE [Concomitant]
     Indication: CHRONIC LYMPHOCYTIC LEUKAEMIA
     Dosage: UNK
  5. FLUDARABINE [Concomitant]
     Indication: CHRONIC LYMPHOCYTIC LEUKAEMIA
     Dosage: 40 MG/M2, UNK
  6. PREDNISONE [Concomitant]
     Indication: CHRONIC LYMPHOCYTIC LEUKAEMIA
     Dosage: UNK
  7. BACTRIM DS [Concomitant]
     Dosage: UNK TABLET, UNK
     Dates: start: 20091002
  8. ZELITREX [Suspect]
     Dosage: UNK TABLET, UNK
     Dates: start: 20091002

REACTIONS (3)
  - DRUG INTERACTION [None]
  - DYSPNOEA [None]
  - LUNG DISORDER [None]
